FAERS Safety Report 5314875-5 (Version None)
Quarter: 2007Q2

REPORT INFORMATION
  Report Type: 
  Country: None (occurrence: None)
  Receive Date: 20070502
  Receipt Date: 20070419
  Transmission Date: 20071010
  Serious: Yes (Other)
  Sender: FDA-Public Use
  Company Number: GB-SHR-GB-2007-013563

PATIENT
  Age: 64 Year
  Sex: Male
  Weight: 85.5 kg

DRUGS (9)
  1. CAMPATH [Suspect]
     Indication: RENAL TRANSPLANT
     Dosage: 30 MG DAY 0 AND DAY +1(2DOSES)
     Route: 042
     Dates: start: 20050622, end: 20050623
  2. TACROLIMUS [Concomitant]
     Indication: PROPHYLAXIS AGAINST TRANSPLANT REJECTION
     Dosage: 1 MG, 2X/DAY
     Route: 048
     Dates: start: 20050622
  3. MYCOPHENOLATE MOFETIL [Concomitant]
  4. AZATHIOPRINE [Concomitant]
     Indication: PROPHYLAXIS AGAINST TRANSPLANT REJECTION
     Dosage: 100 MG, 1X/DAY
     Route: 048
     Dates: start: 20060326
  5. NIFEDIPINE [Concomitant]
     Indication: HYPERTENSION
     Dosage: 60 MG, 1X/DAY
     Route: 048
     Dates: start: 20050622
  6. OMEPRAZOLE [Concomitant]
     Dosage: 20 MG, 1X/DAY
     Route: 048
     Dates: start: 20050622
  7. ASPIRIN [Concomitant]
     Dosage: 75 MG, 1X/DAY
     Route: 048
     Dates: start: 20050622
  8. ARANESP [Concomitant]
     Dosage: 30 A?G, UNK
     Route: 058
     Dates: start: 20060602
  9. CLONAZEPAM [Concomitant]
     Indication: SLEEP DISORDER
     Dosage: 2.5 MG, BED T.
     Route: 048

REACTIONS (1)
  - LYMPHOPROLIFERATIVE DISORDER [None]
